FAERS Safety Report 13413173 (Version 1)
Quarter: 2017Q2

REPORT INFORMATION
  Report Type: Spontaneous
  Country: US (occurrence: US)
  Receive Date: 20170407
  Receipt Date: 20170407
  Transmission Date: 20170830
  Serious: Yes (Other)
  Sender: FDA-Public Use
  Company Number: None

PATIENT
  Age: 49 Year
  Sex: Female
  Weight: 81 kg

DRUGS (16)
  1. SERTRALINE [Concomitant]
     Active Substance: SERTRALINE HYDROCHLORIDE
  2. BACLOFEN. [Concomitant]
     Active Substance: BACLOFEN
  3. TIZANADINE [Concomitant]
     Active Substance: TIZANIDINE
  4. HYDROCODONE [Concomitant]
     Active Substance: HYDROCODONE
  5. ACYCLOVIR. [Concomitant]
     Active Substance: ACYCLOVIR
  6. ZINC. [Concomitant]
     Active Substance: ZINC
  7. ALLEGRA-D [Concomitant]
     Active Substance: FEXOFENADINE\PSEUDOEPHEDRINE
  8. CALCIUM [Concomitant]
     Active Substance: CALCIUM
  9. ACYCLOVIR. [Suspect]
     Active Substance: ACYCLOVIR
     Indication: ORAL HERPES
     Dosage: ?          QUANTITY:60 TABLET(S);?TWICE A DAY ORAL
     Route: 048
     Dates: start: 20170307, end: 20170405
  10. LORAZIPAM [Concomitant]
  11. MAGNESIUM [Concomitant]
     Active Substance: MAGNESIUM
  12. VITAL REDS [Concomitant]
  13. GINGER ROOT [Concomitant]
     Active Substance: GINGER
  14. MULTIVITAMIN [Concomitant]
     Active Substance: VITAMINS
  15. PLEGRIDY [Concomitant]
     Active Substance: PEGINTERFERON BETA-1A
  16. VIT. D2 [Concomitant]

REACTIONS (3)
  - Oral herpes [None]
  - Condition aggravated [None]
  - Product substitution issue [None]

NARRATIVE: CASE EVENT DATE: 20170307
